FAERS Safety Report 7428898-3 (Version None)
Quarter: 2011Q2

REPORT INFORMATION
  Report Type: 
  Country: None (occurrence: None)
  Receive Date: 20110421
  Receipt Date: 20110408
  Transmission Date: 20111010
  Serious: Yes (Life-Threatening, Hospitalization, Other)
  Sender: FDA-Public Use
  Company Number: DE-MYLANLABS-2011S1007242

PATIENT
  Age: 78 Year
  Sex: Female
  Weight: 64 kg

DRUGS (3)
  1. LISIPLUS [Suspect]
     Indication: PRODUCT USED FOR UNKNOWN INDICATION
     Dosage: 1X1 TABLET DAILY PER OS
     Route: 048
     Dates: start: 20101101, end: 20110115
  2. FUROSEMID [Suspect]
     Indication: PRODUCT USED FOR UNKNOWN INDICATION
     Dosage: 1X1 TABLET AT 40 MG DAILY PER OS
     Route: 048
     Dates: start: 20101228, end: 20110115
  3. TORSEMIDE [Suspect]
     Indication: PRODUCT USED FOR UNKNOWN INDICATION
     Dosage: 2X1 TABLET AT 10 MG DAILY PER OS
     Route: 048
     Dates: start: 20100705, end: 20110115

REACTIONS (1)
  - RENAL FAILURE ACUTE [None]
